FAERS Safety Report 8116406-3 (Version None)
Quarter: 2012Q1

REPORT INFORMATION
  Report Type: 
  Country: None (occurrence: None)
  Receive Date: 20120206
  Receipt Date: 20120126
  Transmission Date: 20120608
  Serious: Yes (Other)
  Sender: FDA-Public Use
  Company Number: CA-JNJFOC-20110805170

PATIENT
  Age: 39 Year
  Sex: Male
  Weight: 90.72 kg

DRUGS (6)
  1. EFFEXOR [Concomitant]
     Indication: DEPRESSION
  2. CIMETIDINE [Concomitant]
     Indication: GASTROOESOPHAGEAL REFLUX DISEASE
  3. EXTRA STRENGTH TYLENOL [Suspect]
     Indication: ABDOMINAL PAIN UPPER
     Route: 048
  4. EXTRA STRENGTH TYLENOL [Suspect]
     Indication: BACK PAIN
     Route: 048
  5. EXTRA STRENGTH TYLENOL [Suspect]
     Indication: ARTHRALGIA
     Route: 048
  6. VENTOLIN [Concomitant]
     Indication: ASTHMA

REACTIONS (2)
  - HEPATIC FAILURE [None]
  - PRODUCT QUALITY ISSUE [None]
